FAERS Safety Report 4958622-5 (Version None)
Quarter: 2006Q1

REPORT INFORMATION
  Report Type: 
  Country: None (occurrence: None)
  Receive Date: 20060127
  Receipt Date: 20050106
  Transmission Date: 20060701
  Serious: Yes (Death)
  Sender: FDA-Public Use
  Company Number: 05-01-0042

PATIENT
  Age: 53 Year
  Sex: Male

DRUGS (2)
  1. CLOZAPINE [Suspect]
     Indication: HALLUCINATION, AUDITORY
     Dosage: 100-400MG QD, ORAL
     Route: 048
     Dates: start: 20020901, end: 20041201
  2. CLOZAPINE [Suspect]
     Indication: PSYCHOTIC DISORDER
     Dosage: 100-400MG QD, ORAL
     Route: 048
     Dates: start: 20020901, end: 20041201

REACTIONS (1)
  - UNEVALUABLE EVENT [None]
